FAERS Safety Report 10755029 (Version 1)
Quarter: 2015Q1

REPORT INFORMATION
  Report Type: Spontaneous
  Country: US (occurrence: None)
  Receive Date: 20150123
  Receipt Date: 20150123
  Transmission Date: 20150721
  Serious: Yes (Hospitalization)
  Sender: FDA-Public Use
  Company Number: TPA2009A03218

PATIENT
  Age: 5 Month
  Sex: Male
  Weight: 5.44 kg

DRUGS (4)
  1. NYSTATIN. [Concomitant]
     Active Substance: NYSTATIN
  2. PREVACID SOLUTAB [Suspect]
     Active Substance: LANSOPRAZOLE
     Indication: GASTROOESOPHAGEAL REFLUX DISEASE
     Route: 048
     Dates: start: 20090910
  3. AZITHROMYCIN [Concomitant]
     Active Substance: AZITHROMYCIN ANHYDROUS
  4. PULMICORT AMPULES (BUDESONIDE) [Concomitant]

REACTIONS (2)
  - Tongue discolouration [None]
  - Pneumonia [None]
